FAERS Safety Report 11388087 (Version 2)
Quarter: 2015Q3

REPORT INFORMATION
  Report Type: Spontaneous
  Country: AU (occurrence: AU)
  Receive Date: 20150817
  Receipt Date: 20150901
  Transmission Date: 20151125
  Serious: Yes (Death, Hospitalization, Other)
  Sender: FDA-Public Use
  Company Number: AU-GLAXOSMITHKLINE-AU2015GSK116761

PATIENT
  Age: 83 Year
  Sex: Male
  Weight: 59 kg

DRUGS (4)
  1. AVAPRO HCT [Concomitant]
     Active Substance: HYDROCHLOROTHIAZIDE\IRBESARTAN
     Indication: PRODUCT USED FOR UNKNOWN INDICATION
     Dosage: 150 MG, UNK
  2. VOTRIENT [Suspect]
     Active Substance: PAZOPANIB HYDROCHLORIDE
     Indication: METASTASES TO LUNG
     Dosage: 800 MG, 1D
     Route: 048
     Dates: start: 20150316, end: 20150331
  3. METOPROLOL [Concomitant]
     Active Substance: METOPROLOL
     Indication: PRODUCT USED FOR UNKNOWN INDICATION
     Dosage: 50 MG, UNK
     Route: 048
  4. VOTRIENT [Suspect]
     Active Substance: PAZOPANIB HYDROCHLORIDE
     Indication: RENAL CELL CARCINOMA

REACTIONS (9)
  - Confusional state [Unknown]
  - Nausea [Unknown]
  - Jaundice [Unknown]
  - Drug-induced liver injury [Fatal]
  - Abdominal pain [Unknown]
  - Pruritus [Unknown]
  - Hepatic failure [Fatal]
  - Jaundice cholestatic [Fatal]
  - Pleural effusion [Unknown]

NARRATIVE: CASE EVENT DATE: 20150320
